FAERS Safety Report 9360070 (Version 1)
Quarter: 2013Q2

REPORT INFORMATION
  Report Type: Spontaneous
  Country: US (occurrence: US)
  Receive Date: 20130621
  Receipt Date: 20130621
  Transmission Date: 20140414
  Serious: No
  Sender: FDA-Public Use
  Company Number: US-PFIZER INC-2013138900

PATIENT
  Age: 45 Year
  Sex: Female

DRUGS (9)
  1. NEURONTIN [Suspect]
     Indication: NEUROPATHY PERIPHERAL
     Dosage: 400 MG, 3X/DAY
     Route: 048
     Dates: start: 201108, end: 20130402
  2. CELEBREX [Concomitant]
     Dosage: 200 MG, 1X/DAY
  3. VESICARE [Concomitant]
     Dosage: 10 MG, UNK
  4. CLARINEX [Concomitant]
     Dosage: 5 MG, UNK
  5. EFFEXOR-XR [Concomitant]
     Dosage: 75 MG, UNK
  6. VISTARIL [Concomitant]
     Dosage: 25 MG, UNK
  7. TOPAMAX [Concomitant]
     Dosage: 25 MG, UNK
  8. NASONEX SPRAY [Concomitant]
     Dosage: UNK
  9. EFFEXOR [Concomitant]

REACTIONS (1)
  - Memory impairment [Recovered/Resolved]
